FAERS Safety Report 15035175 (Version 2)
Quarter: 2019Q2

REPORT INFORMATION
  Report Type: Spontaneous
  Country: US (occurrence: US)
  Receive Date: 20180620
  Receipt Date: 20190628
  Transmission Date: 20190711
  Serious: No
  Sender: FDA-Public Use
  Company Number: US-PFIZER INC-2018249306

PATIENT
  Age: 72 Year
  Sex: Female

DRUGS (3)
  1. EUCRISA [Suspect]
     Active Substance: CRISABOROLE
     Indication: SKIN DISORDER
     Dosage: UNK, 2X/DAY (APPLY ONE APPLICATION EXTERNALLY TWICE DAILY)
     Route: 061
     Dates: start: 20180501, end: 20180502
  2. EUCRISA [Suspect]
     Active Substance: CRISABOROLE
     Indication: PRURITUS
  3. EUCRISA [Suspect]
     Active Substance: CRISABOROLE
     Indication: ERYTHEMA

REACTIONS (1)
  - Drug ineffective [Recovered/Resolved]
